FAERS Safety Report 24832027 (Version 1)
Quarter: 2025Q1

REPORT INFORMATION
  Report Type: Spontaneous
  Country: US (occurrence: None)
  Receive Date: 20250109
  Receipt Date: 20250109
  Transmission Date: 20250408
  Serious: Yes (Other)
  Sender: FDA-CTU
  Company Number: None

PATIENT
  Age: 4 Week
  Sex: Female
  Weight: 4.28 kg

DRUGS (1)
  1. BEYFORTUS [Suspect]
     Active Substance: NIRSEVIMAB-ALIP
     Route: 030

REACTIONS (3)
  - Periorbital swelling [None]
  - Swelling face [None]
  - Irritability [None]

NARRATIVE: CASE EVENT DATE: 20250107
